FAERS Safety Report 6260945-7 (Version None)
Quarter: 2009Q3

REPORT INFORMATION
  Report Type: 
  Country: None (occurrence: None)
  Receive Date: 20090709
  Receipt Date: 20090702
  Transmission Date: 20100115
  Serious: Yes (Other)
  Sender: FDA-Public Use
  Company Number: GB-BRISTOL-MYERS SQUIBB COMPANY-14688576

PATIENT
  Sex: Female

DRUGS (3)
  1. REYATAZ [Suspect]
  2. TRUVADA [Suspect]
  3. KALETRA [Suspect]

REACTIONS (1)
  - VIROLOGIC FAILURE [None]
